FAERS Safety Report 9076807 (Version 1)
Quarter: 2013Q1

REPORT INFORMATION
  Report Type: Report from Study
  Country: CA (occurrence: CA)
  Receive Date: 20130130
  Receipt Date: 20130130
  Transmission Date: 20140127
  Serious: Yes (Hospitalization)
  Sender: FDA-Public Use
  Company Number: CA-JNJFOC-20130112334

PATIENT
  Sex: Female
  Weight: 31.75 kg

DRUGS (1)
  1. REMICADE [Suspect]
     Indication: CROHN^S DISEASE
     Route: 042
     Dates: start: 201207

REACTIONS (2)
  - Weight decreased [Recovering/Resolving]
  - Asthenia [Recovering/Resolving]
